FAERS Safety Report 25528641 (Version 1)
Quarter: 2025Q3

REPORT INFORMATION
  Report Type: Spontaneous
  Country: MA (occurrence: MA)
  Receive Date: 20250708
  Receipt Date: 20250708
  Transmission Date: 20251021
  Serious: Yes (Other)
  Sender: RANBAXY
  Company Number: MA-SUN PHARMACEUTICAL INDUSTRIES LTD-2023R1-396844

PATIENT
  Age: 55 Year
  Sex: Male
  Weight: 56 kg

DRUGS (1)
  1. DOCETAXEL [Suspect]
     Active Substance: DOCETAXEL
     Indication: Prostate cancer
     Dosage: 75 MILLIGRAM/SQ. METER, 1DOSE/2 WEEKS
     Route: 065

REACTIONS (5)
  - Mucosal inflammation [Unknown]
  - Condition aggravated [Unknown]
  - Skin hyperpigmentation [Unknown]
  - Skin reaction [Unknown]
  - Off label use [Unknown]
